FAERS Safety Report 23589523 (Version 3)
Quarter: 2024Q1

REPORT INFORMATION
  Report Type: Spontaneous
  Country: SK (occurrence: SK)
  Receive Date: 20240304
  Receipt Date: 20240325
  Transmission Date: 20240410
  Serious: Yes (Other)
  Sender: FDA-Public Use
  Company Number: SK-Gedeon Richter Plc.-2024_GR_001713

PATIENT
  Age: 62 Year
  Sex: Female

DRUGS (9)
  1. HALOPERIDOL [Suspect]
     Active Substance: HALOPERIDOL
     Indication: Product used for unknown indication
     Route: 065
  2. CINOLAZEPAM [Concomitant]
     Active Substance: CINOLAZEPAM
     Indication: Sleep disorder
  3. CINOLAZEPAM [Concomitant]
     Active Substance: CINOLAZEPAM
     Indication: Dyssomnia
  4. MIRTAZAPINE [Concomitant]
     Active Substance: MIRTAZAPINE
     Indication: Depression
  5. MIRTAZAPINE [Concomitant]
     Active Substance: MIRTAZAPINE
     Indication: Dyssomnia
  6. OLANZAPINE [Concomitant]
     Active Substance: OLANZAPINE
     Dosage: 15 MG / DAY?10 MG / DAY
  7. ARIPIPRAZOLE [Concomitant]
     Active Substance: ARIPIPRAZOLE
     Dosage: 20 MG/DAY
  8. QUETIAPINE [Concomitant]
     Active Substance: QUETIAPINE
     Dosage: A LOW NIGHT DOSE
  9. FLUPENTIXOL [Concomitant]
     Active Substance: FLUPENTIXOL

REACTIONS (2)
  - Catatonia [Unknown]
  - Pulmonary embolism [Unknown]
